FAERS Safety Report 11916846 (Version 2)
Quarter: 2016Q1

REPORT INFORMATION
  Report Type: Spontaneous
  Country: US (occurrence: US)
  Receive Date: 20160114
  Receipt Date: 20160122
  Transmission Date: 20160526
  Serious: No
  Sender: FDA-Public Use
  Company Number: US-PFIZER INC-2016006978

PATIENT
  Age: 73 Year
  Sex: Female
  Weight: 117.93 kg

DRUGS (1)
  1. LYRICA [Suspect]
     Active Substance: PREGABALIN
     Indication: MYALGIA
     Dosage: 75MG CAPSULE IN MORNING AND 150 MG CAPSULE IN NIGHT AT BED TIME
     Route: 048

REACTIONS (1)
  - Drug ineffective for unapproved indication [Unknown]
